FAERS Safety Report 7733050-8 (Version None)
Quarter: 2011Q3

REPORT INFORMATION
  Report Type: 
  Country: None (occurrence: None)
  Receive Date: 20110907
  Receipt Date: 20110902
  Transmission Date: 20111222
  Serious: No
  Sender: FDA-Public Use
  Company Number: US-PFIZER INC-2011205874

PATIENT
  Sex: Female
  Weight: 58.9 kg

DRUGS (2)
  1. VASOTEC [Concomitant]
     Indication: HYPERTENSION
     Dosage: UNK
  2. ADVIL LIQUI-GELS [Suspect]
     Indication: ARTHRALGIA
     Dosage: 200 MG, 3X/DAY
     Route: 048
     Dates: start: 20110824, end: 20110902

REACTIONS (2)
  - NONSPECIFIC REACTION [None]
  - RASH MACULAR [None]
